FAERS Safety Report 6907728-X (Version None)
Quarter: 2010Q3

REPORT INFORMATION
  Report Type: 
  Country: None (occurrence: None)
  Receive Date: 20100805
  Receipt Date: 20100729
  Transmission Date: 20110219
  Serious: Yes (Life-Threatening, Other)
  Sender: FDA-Public Use
  Company Number: JP-SANOFI-AVENTIS-2010SA037306

PATIENT
  Age: 66 Year
  Sex: Female

DRUGS (9)
  1. ALLEGRA [Suspect]
     Route: 048
     Dates: start: 20100405, end: 20100410
  2. OLMESARTAN MEDOXOMIL [Concomitant]
     Indication: HYPERTENSION
     Route: 048
  3. NIFEDIPINE [Concomitant]
     Indication: HYPERTENSION
     Route: 048
     Dates: start: 20100219
  4. EPERISONE HYDROCHLORIDE [Concomitant]
     Route: 048
     Dates: start: 20040101
  5. ALL OTHER THERAPEUTIC PRODUCTS [Concomitant]
     Route: 048
     Dates: start: 20040101
  6. LIMAS [Concomitant]
     Route: 048
     Dates: start: 20040101
  7. BENZALIN [Concomitant]
     Route: 048
     Dates: start: 20040101
  8. DEPAS [Concomitant]
     Route: 048
     Dates: start: 20040101
  9. HALCION [Concomitant]
     Route: 048
     Dates: start: 20040101

REACTIONS (2)
  - PRURITUS [None]
  - STEVENS-JOHNSON SYNDROME [None]
